FAERS Safety Report 5560126-6 (Version None)
Quarter: 2007Q4

REPORT INFORMATION
  Report Type: 
  Country: None (occurrence: None)
  Receive Date: 20071214
  Receipt Date: 20071020
  Transmission Date: 20080405
  Serious: No
  Sender: FDA-Public Use
  Company Number: US-ABBOTT-07P-163-0422253-00

PATIENT
  Sex: Female
  Weight: 72.64 kg

DRUGS (4)
  1. HUMIRA [Suspect]
     Indication: ANKYLOSING SPONDYLITIS
     Route: 058
     Dates: start: 20070920, end: 20071009
  2. HUMIRA [Suspect]
     Dates: start: 20071022
  3. CANDESARTAN CILEXETIL [Concomitant]
     Indication: BLOOD PRESSURE
  4. THYROID TAB [Concomitant]
     Indication: HYPOTHYROIDISM

REACTIONS (1)
  - RASH [None]
